FAERS Safety Report 13592078 (Version 1)
Quarter: 2017Q2

REPORT INFORMATION
  Report Type: Spontaneous
  Country: GB (occurrence: GB)
  Receive Date: 20170530
  Receipt Date: 20170530
  Transmission Date: 20170830
  Serious: Yes (Death, Hospitalization)
  Sender: FDA-Public Use
  Company Number: GB-JNJFOC-20120408350

PATIENT

DRUGS (2)
  1. TRABECTEDIN [Suspect]
     Active Substance: TRABECTEDIN
     Route: 042
  2. TRABECTEDIN [Suspect]
     Active Substance: TRABECTEDIN
     Indication: SOFT TISSUE SARCOMA
     Dosage: MEDIAN NUMBER OF CYCLES REPORTED AS 3
     Route: 042

REACTIONS (6)
  - Blood creatine phosphokinase increased [Unknown]
  - Transaminases increased [Unknown]
  - Toxicity to various agents [Unknown]
  - Fatigue [Unknown]
  - Toxicity to various agents [Fatal]
  - Bone marrow toxicity [Unknown]
